FAERS Safety Report 6189590-9 (Version None)
Quarter: 2009Q2

REPORT INFORMATION
  Report Type: 
  Country: None (occurrence: None)
  Receive Date: 20090514
  Receipt Date: 20090501
  Transmission Date: 20091009
  Serious: Yes (Hospitalization)
  Sender: FDA-Public Use
  Company Number: AU-CELGENEUS-008-20785-09020608

PATIENT
  Sex: Male
  Weight: 82 kg

DRUGS (9)
  1. AZACITIDINE [Suspect]
     Route: 058
     Dates: start: 20090206, end: 20090209
  2. AZACITIDINE [Suspect]
     Route: 058
     Dates: start: 20090306
  3. THALIDOMIDE [Suspect]
     Route: 048
     Dates: start: 20090206, end: 20090209
  4. THALIDOMIDE [Suspect]
     Route: 048
     Dates: start: 20090306
  5. ESOMEPRAZOLE MAGNESIUM [Concomitant]
     Indication: DRUG USE FOR UNKNOWN INDICATION
     Route: 065
  6. PRAZSOIN HCL [Concomitant]
     Indication: DRUG USE FOR UNKNOWN INDICATION
     Route: 065
  7. DIGOXIN [Concomitant]
     Indication: DRUG USE FOR UNKNOWN INDICATION
     Route: 065
  8. TIOTROPIUM [Concomitant]
     Indication: DRUG USE FOR UNKNOWN INDICATION
  9. LOPERAMIDE HCL [Concomitant]
     Indication: DRUG USE FOR UNKNOWN INDICATION
     Route: 065

REACTIONS (1)
  - INTESTINAL PERFORATION [None]
